FAERS Safety Report 12641081 (Version 1)
Quarter: 2016Q3

REPORT INFORMATION
  Report Type: Spontaneous
  Country: US (occurrence: US)
  Receive Date: 20160810
  Receipt Date: 20160810
  Transmission Date: 20161109
  Serious: No
  Sender: FDA-Public Use
  Company Number: US-ENDO PHARMACEUTICALS INC.-2016-003309

PATIENT
  Sex: Male
  Weight: 79.45 kg

DRUGS (1)
  1. XIAFLEX [Suspect]
     Active Substance: COLLAGENASE CLOSTRIDIUM HISTOLYTICUM
     Indication: PEYRONIE^S DISEASE
     Dosage: 0.9MG TWO INJECTIONS INTO PENIS WITH 24-78 HOURS BETWEEN
     Route: 065

REACTIONS (2)
  - Penile curvature [Unknown]
  - Drug dose omission [Unknown]
